FAERS Safety Report 10152179 (Version 1)
Quarter: 2014Q2

REPORT INFORMATION
  Report Type: Spontaneous
  Country: US (occurrence: None)
  Receive Date: 20140502
  Receipt Date: 20140502
  Transmission Date: 20141212
  Serious: Yes (Other)
  Sender: FDA-Public Use
  Company Number: None

PATIENT
  Age: 42 Year
  Sex: Female
  Weight: 87.54 kg

DRUGS (2)
  1. CYMBALTA [Suspect]
     Indication: MAJOR DEPRESSION
     Dosage: 3 THEN 4 PILLS
     Route: 048
  2. CYMBALTA [Suspect]
     Indication: MIGRAINE
     Dosage: 3 THEN 4 PILLS
     Route: 048

REACTIONS (7)
  - Drug ineffective [None]
  - Screaming [None]
  - Agitation [None]
  - Hypersomnia [None]
  - Feelings of worthlessness [None]
  - Aggression [None]
  - Product substitution issue [None]
